FAERS Safety Report 11863673 (Version 2)
Quarter: 2016Q1

REPORT INFORMATION
  Report Type: Spontaneous
  Country: JP (occurrence: JP)
  Receive Date: 20151223
  Receipt Date: 20160205
  Transmission Date: 20160526
  Serious: Yes (Other)
  Sender: FDA-Public Use
  Company Number: JP-ELI_LILLY_AND_COMPANY-JP201512005839

PATIENT
  Age: 74 Year
  Sex: Male
  Weight: 66 kg

DRUGS (7)
  1. ALLOPURINOL. [Concomitant]
     Active Substance: ALLOPURINOL
     Dosage: 1 DF, QD
     Route: 048
  2. VESICARE [Concomitant]
     Active Substance: SOLIFENACIN SUCCINATE
     Dosage: 1 DF, QD
     Route: 048
  3. CYRAMZA [Suspect]
     Active Substance: RAMUCIRUMAB
     Indication: GASTRIC CANCER RECURRENT
     Dosage: 450 MG, DAY 1 AND DAY 15
     Route: 042
     Dates: start: 20151030, end: 20151113
  4. CERNILTON                          /00521401/ [Concomitant]
     Dosage: 4 DF, BID
     Route: 048
  5. FERROUS CITRATE NA [Concomitant]
     Active Substance: SODIUM FERROUS CITRATE
     Dosage: 2 DF, BID
     Route: 048
  6. PACLITAXEL. [Concomitant]
     Active Substance: PACLITAXEL
     Indication: GASTRIC CANCER RECURRENT
     Dosage: 120 MG, DAY 1, DAY 8 AND DAY 15
     Route: 042
     Dates: start: 20151030, end: 20151113
  7. HARNAL [Concomitant]
     Active Substance: TAMSULOSIN HYDROCHLORIDE
     Dosage: 1 DF, QD
     Route: 048

REACTIONS (2)
  - Haemoglobin decreased [Unknown]
  - Interstitial lung disease [Recovering/Resolving]

NARRATIVE: CASE EVENT DATE: 20151120
